FAERS Safety Report 7621855-3 (Version None)
Quarter: 2011Q3

REPORT INFORMATION
  Report Type: 
  Country: None (occurrence: None)
  Receive Date: 20110720
  Receipt Date: 20110712
  Transmission Date: 20111222
  Serious: No
  Sender: FDA-Public Use
  Company Number: US-BIOGENIDEC-2011BI013546

PATIENT
  Age: 62 Year
  Sex: Female

DRUGS (1)
  1. TYSABRI [Suspect]
     Indication: MULTIPLE SCLEROSIS
     Route: 042
     Dates: start: 20081110

REACTIONS (5)
  - HYPOAESTHESIA [None]
  - PNEUMONIA [None]
  - BACK PAIN [None]
  - HAEMOPTYSIS [None]
  - MULTIPLE SCLEROSIS RELAPSE [None]
